FAERS Safety Report 7047113-6 (Version None)
Quarter: 2010Q4

REPORT INFORMATION
  Report Type: 
  Country: None (occurrence: None)
  Receive Date: 20101015
  Receipt Date: 20101006
  Transmission Date: 20110411
  Serious: Yes (Hospitalization)
  Sender: FDA-Public Use
  Company Number: US-ASTRAZENECA-2010SE33507

PATIENT
  Age: 68 Year
  Sex: Male

DRUGS (2)
  1. CRESTOR [Suspect]
     Route: 048
  2. NIASPAN [Concomitant]

REACTIONS (10)
  - ASTHENIA [None]
  - BLOOD CREATINE PHOSPHOKINASE INCREASED [None]
  - BLOOD CREATININE INCREASED [None]
  - GAIT DISTURBANCE [None]
  - MOBILITY DECREASED [None]
  - PAIN [None]
  - PAIN IN EXTREMITY [None]
  - RENAL FAILURE [None]
  - RENAL FAILURE ACUTE [None]
  - RHABDOMYOLYSIS [None]
